FAERS Safety Report 9173223 (Version 1)
Quarter: 2013Q1

REPORT INFORMATION
  Report Type: Spontaneous
  Country: US (occurrence: None)
  Receive Date: 20130319
  Receipt Date: 20130319
  Transmission Date: 20140127
  Serious: Yes (Other)
  Sender: FDA-Public Use
  Company Number: None

PATIENT
  Age: 48 Year
  Sex: Female
  Weight: 158.76 kg

DRUGS (1)
  1. TRI-SPRINTEC [Suspect]
     Route: 048
     Dates: start: 19920322, end: 20130317

REACTIONS (22)
  - Urticaria [None]
  - Dyspnoea [None]
  - Fatigue [None]
  - Feeling abnormal [None]
  - Disturbance in attention [None]
  - Memory impairment [None]
  - Aphasia [None]
  - Dysarthria [None]
  - Dizziness [None]
  - Presyncope [None]
  - Hypoaesthesia [None]
  - Blepharospasm [None]
  - Cardiac flutter [None]
  - Somnolence [None]
  - Weight increased [None]
  - Oedema peripheral [None]
  - Abdominal distension [None]
  - Anaemia [None]
  - Constipation [None]
  - Chromaturia [None]
  - Urinary tract infection [None]
  - Muscle spasms [None]
